FAERS Safety Report 5308635-9 (Version None)
Quarter: 2007Q2

REPORT INFORMATION
  Report Type: 
  Country: None (occurrence: None)
  Receive Date: 20070426
  Receipt Date: 20070417
  Transmission Date: 20071010
  Serious: Yes (Hospitalization)
  Sender: FDA-Public Use
  Company Number: HQWYE637418APR07

PATIENT
  Sex: Male
  Weight: 73 kg

DRUGS (7)
  1. SIROLIMUS [Suspect]
     Indication: PROPHYLAXIS AGAINST TRANSPLANT REJECTION
     Route: 048
     Dates: start: 20040204
  2. MYCOPHENOLATE MOFETIL [Concomitant]
     Indication: PROPHYLAXIS AGAINST TRANSPLANT REJECTION
     Dosage: UNSPECIFIED DOSE AND REGIMEN
     Route: 065
     Dates: start: 20060307
  3. CALCITRIOL [Concomitant]
     Indication: HYPERPARATHYROIDISM
     Dosage: UNSPECIFIED DOSE AND REGIMEN
     Route: 065
     Dates: start: 20030822
  4. LOSARTAN POSTASSIUM [Concomitant]
     Indication: HYPERTENSION
     Dosage: UNSPECIFIED DOSE AND REGIMEN
     Route: 065
     Dates: start: 20061027
  5. ATORVASTATIN CALCIUM [Concomitant]
     Indication: HYPERLIPIDAEMIA
     Dosage: UNSPECIFIED DOSE AND REGIMEN
     Route: 065
     Dates: start: 20040716
  6. MEPREDNISONE [Concomitant]
     Indication: PROPHYLAXIS AGAINST TRANSPLANT REJECTION
     Dosage: UNSPECIFIED DOSE AND REGIMEN
     Route: 065
     Dates: start: 20040420
  7. ENALAPRIL MALEATE [Concomitant]
     Indication: HYPERTENSION
     Dosage: UNSPECIFIED DOSE AND REGIMEN
     Route: 065
     Dates: start: 20060307

REACTIONS (2)
  - COUGH [None]
  - PYREXIA [None]
